FAERS Safety Report 24462424 (Version 1)
Quarter: 2024Q4

REPORT INFORMATION
  Report Type: Spontaneous
  Country: HU (occurrence: HU)
  Receive Date: 20241018
  Receipt Date: 20241018
  Transmission Date: 20250115
  Serious: Yes (Other)
  Sender: SANOFI AVENTIS
  Company Number: None

PATIENT
  Age: 49 Year
  Sex: Female
  Weight: 88 kg

DRUGS (3)
  1. ETHAMBUTOL [Suspect]
     Active Substance: ETHAMBUTOL HYDROCHLORIDE
     Indication: Atypical mycobacterial pneumonia
     Dosage: 1250 MG, QD
     Route: 048
     Dates: start: 20231010, end: 2024
  2. CLARITHROMYCIN [Suspect]
     Active Substance: CLARITHROMYCIN
     Indication: Atypical mycobacterial pneumonia
     Dosage: 500 MG, BID
     Route: 048
     Dates: start: 20231022, end: 20240823
  3. RIFAMPIN [Suspect]
     Active Substance: RIFAMPIN
     Indication: Atypical mycobacterial pneumonia
     Dosage: 600 MG, QD
     Route: 048
     Dates: start: 20231020, end: 20240823

REACTIONS (5)
  - Diarrhoea [Not Recovered/Not Resolved]
  - Vision blurred [Not Recovered/Not Resolved]
  - Skin hyperpigmentation [Not Recovered/Not Resolved]
  - Hallucination [Not Recovered/Not Resolved]
  - Pruritus [Not Recovered/Not Resolved]

NARRATIVE: CASE EVENT DATE: 20231122
